FAERS Safety Report 9225612 (Version 1)
Quarter: 2013Q2

REPORT INFORMATION
  Report Type: Report from Study
  Country: US (occurrence: US)
  Receive Date: 20130411
  Receipt Date: 20130411
  Transmission Date: 20140414
  Serious: Yes (Death, Other)
  Sender: FDA-Public Use
  Company Number: US-ROCHE-1209279

PATIENT
  Sex: 0

DRUGS (5)
  1. TENECTEPLASE [Suspect]
     Indication: ACUTE MYOCARDIAL INFARCTION
     Dosage: 0.25 MG/KG; IN PATIENTS }75 YEARS OF AGE: BOLUS REDUCED TO 0.20 MG/KG, THERAPY DURATION: ONCE
     Route: 040
  2. ASPIRIN [Suspect]
     Indication: CORONARY ARTERIAL STENT INSERTION
     Dosage: 162- 325 MG
     Route: 048
  3. EPTIFIBATIDE [Suspect]
     Indication: ACUTE MYOCARDIAL INFARCTION
     Dosage: 180 MCG/KG, SECOND 180 MCG/KG BOLUS 10 MINUTES AFTER THE 1ST BOLUS; IN PATIENTS }75 YEARS OF AGE: 2N
     Route: 040
  4. CLOPIDOGREL BISULFATE [Suspect]
     Indication: CORONARY ARTERIAL STENT INSERTION
     Route: 065
  5. HEPARIN [Suspect]
     Indication: ANTICOAGULANT THERAPY
     Dosage: 40 U/KG BOLUS NOT TO EXCEED 3000 U: ENOXAPARIN: 0.4 MG/KG IV BOLUS NOT TO EXCEED 40 MG
     Route: 040

REACTIONS (3)
  - Death [Fatal]
  - Cardiac failure congestive [Unknown]
  - Haemorrhage [Unknown]
